APPROVED DRUG PRODUCT: LITHIUM CARBONATE
Active Ingredient: LITHIUM CARBONATE
Strength: 600MG
Dosage Form/Route: CAPSULE;ORAL
Application: A078763 | Product #001
Applicant: PHARMOBEDIENT CONSULTING LLC
Approved: Apr 15, 2008 | RLD: No | RS: No | Type: DISCN